FAERS Safety Report 16106749 (Version 1)
Quarter: 2019Q1

REPORT INFORMATION
  Report Type: Spontaneous
  Country: GR (occurrence: GR)
  Receive Date: 20190322
  Receipt Date: 20190322
  Transmission Date: 20190418
  Serious: Yes (Life-Threatening, Hospitalization)
  Sender: FDA-Public Use
  Company Number: GR-BAUSCH-BL-2019-008674

PATIENT
  Age: 33 Year
  Sex: Female

DRUGS (1)
  1. PREDNISOLONE. [Suspect]
     Active Substance: PREDNISOLONE
     Indication: PEMPHIGUS
     Dosage: LONG-TERM TREATMENT
     Route: 065

REACTIONS (2)
  - Uterine rupture [Unknown]
  - Maternal exposure during pregnancy [Unknown]
